FAERS Safety Report 10219257 (Version 1)
Quarter: 2014Q2

REPORT INFORMATION
  Report Type: Spontaneous
  Country: US (occurrence: None)
  Receive Date: 20140604
  Receipt Date: 20140604
  Transmission Date: 20141212
  Serious: No
  Sender: FDA-Public Use
  Company Number: None

PATIENT
  Age: 56 Year
  Sex: Male

DRUGS (3)
  1. SOVALDI [Suspect]
     Indication: HEPATITIS C
     Dosage: 1 TAB, QD, ORAL
     Route: 048
     Dates: start: 20140505
  2. OLYSIO [Concomitant]
  3. RIBAPAK [Concomitant]

REACTIONS (5)
  - Fall [None]
  - Lethargy [None]
  - Blood glucose increased [None]
  - Laceration [None]
  - Memory impairment [None]
